FAERS Safety Report 22006733 (Version 1)
Quarter: 2023Q1

REPORT INFORMATION
  Report Type: Other
  Country: None (occurrence: US)
  Receive Date: 20230217
  Receipt Date: 20230217
  Transmission Date: 20230417
  Serious: Yes (Hospitalization, Other)
  Sender: FDA-Public Use
  Company Number: US-Spectra Medical Devices, LLC-2138097

PATIENT
  Age: 21 Year
  Sex: Male

DRUGS (1)
  1. SODIUM CHLORIDE [Suspect]
     Active Substance: SODIUM CHLORIDE
     Indication: Skin cosmetic procedure
     Route: 065

REACTIONS (4)
  - Fournier^s gangrene [Unknown]
  - Beta haemolytic streptococcal infection [Unknown]
  - Intentional product misuse [Unknown]
  - Product use in unapproved indication [Unknown]
